FAERS Safety Report 6837841-7 (Version None)
Quarter: 2010Q3

REPORT INFORMATION
  Report Type: 
  Country: None (occurrence: None)
  Receive Date: 20100713
  Receipt Date: 20070523
  Transmission Date: 20110219
  Serious: No
  Sender: FDA-Public Use
  Company Number: US-PFIZER INC-2007042257

PATIENT
  Sex: Female
  Weight: 99.8 kg

DRUGS (13)
  1. CHANTIX [Suspect]
     Indication: SMOKING CESSATION THERAPY
     Dates: start: 20070522
  2. XANAX [Concomitant]
  3. FLEXERIL [Concomitant]
  4. NAPROXEN [Concomitant]
  5. LISINOPRIL [Concomitant]
  6. PROTONIX [Concomitant]
  7. MONTELUKAST SODIUM [Concomitant]
  8. ZOLOFT [Concomitant]
  9. NAVANE [Concomitant]
  10. ABILIFY [Concomitant]
  11. COGENTIN [Concomitant]
  12. LYRICA [Concomitant]
  13. ADVAIR DISKUS 100/50 [Concomitant]

REACTIONS (1)
  - VOMITING [None]
